FAERS Safety Report 5606382-7 (Version None)
Quarter: 2008Q1

REPORT INFORMATION
  Report Type: 
  Country: None (occurrence: None)
  Receive Date: 20080129
  Receipt Date: 20071128
  Transmission Date: 20080703
  Serious: No
  Sender: FDA-Public Use
  Company Number: A0675244A

PATIENT
  Sex: Female

DRUGS (2)
  1. WELLBUTRIN [Suspect]
     Indication: DRUG USE FOR UNKNOWN INDICATION
     Route: 048
  2. ALLI [Suspect]
     Indication: WEIGHT LOSS DIET
     Route: 048
     Dates: start: 20070717

REACTIONS (9)
  - ABDOMINAL PAIN UPPER [None]
  - ADVERSE EVENT [None]
  - COLD SWEAT [None]
  - DIARRHOEA [None]
  - FLATULENCE [None]
  - GASTROINTESTINAL DISORDER [None]
  - IRRITABILITY [None]
  - WEIGHT INCREASED [None]
  - WEIGHT LOSS POOR [None]
